FAERS Safety Report 12626836 (Version 2)
Quarter: 2016Q4

REPORT INFORMATION
  Report Type: Report from Study
  Country: FR (occurrence: FR)
  Receive Date: 20160805
  Receipt Date: 20161227
  Transmission Date: 20170207
  Serious: Yes (Hospitalization, Other)
  Sender: FDA-Public Use
  Company Number: FR-REGENERON PHARMACEUTICALS, INC.-2016-20123

PATIENT

DRUGS (34)
  1. EYLEA [Suspect]
     Active Substance: AFLIBERCEPT
     Dosage: 50 ?L, ONCE
     Route: 031
     Dates: start: 20150327, end: 20150327
  2. EYLEA [Suspect]
     Active Substance: AFLIBERCEPT
     Dosage: 50 ?L, ONCE
     Route: 031
     Dates: start: 20150717, end: 20150717
  3. EYLEA [Suspect]
     Active Substance: AFLIBERCEPT
     Dosage: 50 ?L, ONCE
     Route: 031
     Dates: start: 20151030, end: 20151030
  4. TETRACAINE. [Concomitant]
     Active Substance: TETRACAINE
     Dosage: UNK
     Dates: start: 20150522
  5. EYLEA [Suspect]
     Active Substance: AFLIBERCEPT
     Dosage: 50 ?L, ONCE
     Route: 031
     Dates: start: 20141219, end: 20141219
  6. EYLEA [Suspect]
     Active Substance: AFLIBERCEPT
     Dosage: 50 ?L, ONCE
     Route: 031
     Dates: start: 20150904, end: 20150904
  7. TOBRAMYCIN. [Concomitant]
     Active Substance: TOBRAMYCIN
     Indication: ANTIBIOTIC PROPHYLAXIS
     Dosage: 3 GTT, UNK
     Dates: start: 20141024, end: 20141027
  8. TETRACAINE. [Concomitant]
     Active Substance: TETRACAINE
     Dosage: UNK
     Dates: start: 20150320
  9. TETRACAINE. [Concomitant]
     Active Substance: TETRACAINE
     Dosage: UNK
     Dates: start: 20150717
  10. EYLEA [Suspect]
     Active Substance: AFLIBERCEPT
     Dosage: 50 ?L, ONCE
     Route: 031
     Dates: start: 20141121, end: 20141121
  11. VISMED [Concomitant]
     Active Substance: HYALURONATE SODIUM
     Indication: PRODUCT USED FOR UNKNOWN INDICATION
     Dosage: 1 GTT, UNK
     Dates: start: 20141024, end: 20141108
  12. VISMED [Concomitant]
     Active Substance: HYALURONATE SODIUM
     Dosage: 1 GTT, UNK
     Dates: start: 20141219, end: 20150109
  13. EYLEA [Suspect]
     Active Substance: AFLIBERCEPT
     Indication: NEOVASCULAR AGE-RELATED MACULAR DEGENERATION
     Dosage: 50 ?L, ONCE
     Route: 031
     Dates: start: 20141024, end: 20141024
  14. TETRACAINE. [Concomitant]
     Active Substance: TETRACAINE
     Indication: PRODUCT USED FOR UNKNOWN INDICATION
     Dosage: UNK
     Dates: start: 20141024
  15. TETRACAINE. [Concomitant]
     Active Substance: TETRACAINE
     Dosage: UNK
     Dates: start: 20150213
  16. TETRACAINE. [Concomitant]
     Active Substance: TETRACAINE
     Dosage: UNK
     Dates: start: 20151229
  17. TETRACAINE. [Concomitant]
     Active Substance: TETRACAINE
     Dosage: UNK
     Dates: start: 20150327
  18. EYLEA [Suspect]
     Active Substance: AFLIBERCEPT
     Dosage: 50 ?L, ONCE
     Route: 031
     Dates: start: 20150213, end: 20150213
  19. ARANESP [Concomitant]
     Active Substance: DARBEPOETIN ALFA
     Indication: PRODUCT USED FOR UNKNOWN INDICATION
     Dosage: UNK
  20. TOBRAMYCIN. [Concomitant]
     Active Substance: TOBRAMYCIN
     Dosage: UNK
     Dates: start: 20150904
  21. TETRACAINE. [Concomitant]
     Active Substance: TETRACAINE
     Dosage: UNK
     Dates: start: 20150904
  22. EYLEA [Suspect]
     Active Substance: AFLIBERCEPT
     Dosage: 50 ?L, ONCE
     Route: 031
     Dates: start: 20150320, end: 20150320
  23. EYLEA [Suspect]
     Active Substance: AFLIBERCEPT
     Dosage: 50 ?L, ONCE
     Route: 031
     Dates: start: 20151229, end: 20151229
  24. ARANESP [Concomitant]
     Active Substance: DARBEPOETIN ALFA
     Dosage: UNK
  25. VISMED [Concomitant]
     Active Substance: HYALURONATE SODIUM
     Dosage: 1 GTT, UNK
     Dates: start: 20141121, end: 20141206
  26. TETRACAINE. [Concomitant]
     Active Substance: TETRACAINE
     Dosage: UNK
     Dates: start: 20141219
  27. TETRACAINE. [Concomitant]
     Active Substance: TETRACAINE
     Dosage: UNK
     Dates: start: 20160325
  28. EYLEA [Suspect]
     Active Substance: AFLIBERCEPT
     Dosage: 50 ?L, UNK
     Route: 031
     Dates: start: 20150522, end: 20150522
  29. EYLEA [Suspect]
     Active Substance: AFLIBERCEPT
     Dosage: 50 ?L, ONCE
     Route: 031
     Dates: start: 20160325, end: 20160325
  30. TOBRAMYCIN. [Concomitant]
     Active Substance: TOBRAMYCIN
     Dosage: 3 GTT, UNK
     Dates: start: 20141121, end: 20141124
  31. TOBRAMYCIN. [Concomitant]
     Active Substance: TOBRAMYCIN
     Dosage: 3 GTT, UNK
     Dates: start: 20141219, end: 20141222
  32. TOBREX [Concomitant]
     Active Substance: TOBRAMYCIN
     Indication: PRODUCT USED FOR UNKNOWN INDICATION
     Dosage: UNK
     Dates: start: 20150320
  33. TETRACAINE. [Concomitant]
     Active Substance: TETRACAINE
     Dosage: UNK
     Dates: start: 20141121
  34. TETRACAINE. [Concomitant]
     Active Substance: TETRACAINE
     Dosage: UNK
     Dates: start: 20151030

REACTIONS (1)
  - Meningioma [Recovered/Resolved with Sequelae]

NARRATIVE: CASE EVENT DATE: 20160519
